FAERS Safety Report 18763009 (Version 1)
Quarter: 2021Q1

REPORT INFORMATION
  Report Type: Spontaneous
  Country: US (occurrence: US)
  Receive Date: 20210120
  Receipt Date: 20210120
  Transmission Date: 20210419
  Serious: Yes (Hospitalization)
  Sender: FDA-Public Use
  Company Number: None

PATIENT
  Age: 45 Day
  Sex: Female
  Weight: 3.28 kg

DRUGS (1)
  1. FAMOTIDINE SUSPENSION [Suspect]
     Active Substance: FAMOTIDINE
     Indication: GASTROOESOPHAGEAL REFLUX DISEASE
     Route: 048
     Dates: start: 20201222, end: 20210104

REACTIONS (7)
  - Pyrexia [None]
  - Rash macular [None]
  - Vomiting [None]
  - Flushing [None]
  - Pain [None]
  - Abnormal behaviour [None]
  - Diarrhoea [None]

NARRATIVE: CASE EVENT DATE: 20210106
